FAERS Safety Report 15097890 (Version 1)
Quarter: 2018Q3

REPORT INFORMATION
  Report Type: Spontaneous
  Country: US (occurrence: US)
  Receive Date: 20180702
  Receipt Date: 20180702
  Transmission Date: 20181010
  Serious: No
  Sender: FDA-Public Use
  Company Number: US-PFM-2017-11930

PATIENT

DRUGS (2)
  1. HEMANGEOL [Suspect]
     Active Substance: PROPRANOLOL HYDROCHLORIDE
     Indication: INFANTILE HAEMANGIOMA
     Dosage: 1 ML, BID (2/DAY)
     Route: 048
     Dates: start: 20170809
  2. TIMOLOL. [Interacting]
     Active Substance: TIMOLOL
     Indication: INFANTILE HAEMANGIOMA
     Dosage: 1 DROP, BID (2/DAY)
     Route: 061

REACTIONS (1)
  - Agitation [Unknown]
